FAERS Safety Report 8019983-6 (Version None)
Quarter: 2012Q1

REPORT INFORMATION
  Report Type: 
  Country: None (occurrence: None)
  Receive Date: 20120103
  Receipt Date: 20111222
  Transmission Date: 20120608
  Serious: Yes (Hospitalization)
  Sender: FDA-Public Use
  Company Number: JP-CEPHALON-2011006289

PATIENT
  Age: 36 Year
  Sex: Female
  Weight: 51 kg

DRUGS (8)
  1. FLUCONAZOLE [Concomitant]
     Dates: start: 20111105
  2. LANSOPRAZOLE [Concomitant]
     Dates: start: 20111024
  3. URSODIOL [Concomitant]
  4. TEPRENONE [Concomitant]
     Dates: start: 20110930
  5. DEXAMETHASONE SODIUM PHOSPHATE [Concomitant]
     Dates: start: 20110914
  6. GRANISETRON HCL [Concomitant]
  7. BENDAMUSTINE HCL [Suspect]
     Indication: B-CELL LYMPHOMA
     Route: 042
     Dates: start: 20110914
  8. APREPITANT [Concomitant]

REACTIONS (1)
  - DEEP VEIN THROMBOSIS [None]
